FAERS Safety Report 16313749 (Version 1)
Quarter: 2019Q2

REPORT INFORMATION
  Report Type: Spontaneous
  Country: US (occurrence: US)
  Receive Date: 20190409
  Receipt Date: 20190409
  Transmission Date: 20190711
  Serious: No
  Sender: FDA-Public Use
  Company Number: None

PATIENT
  Age: 64 Year
  Sex: Male

DRUGS (1)
  1. OLUMIANT [Suspect]
     Active Substance: BARICITINIB
     Indication: RHEUMATOID ARTHRITIS
     Route: 048
     Dates: start: 201808

REACTIONS (5)
  - Rheumatoid arthritis [None]
  - Insurance issue [None]
  - Product supply issue [None]
  - Economic problem [None]
  - Therapy cessation [None]

NARRATIVE: CASE EVENT DATE: 20190402
